FAERS Safety Report 9022510 (Version 1)
Quarter: 2013Q1

REPORT INFORMATION
  Report Type: Spontaneous
  Country: US (occurrence: US)
  Receive Date: 20130118
  Receipt Date: 20130118
  Transmission Date: 20140127
  Serious: No
  Sender: FDA-Public Use
  Company Number: US-PFIZER INC-2013022729

PATIENT
  Age: 28 Year
  Sex: Female
  Weight: 104.31 kg

DRUGS (3)
  1. DILANTIN [Suspect]
     Indication: FIBROMYALGIA
     Dosage: 300 MG, 1X/DAY
     Route: 048
     Dates: start: 2012
  2. DILANTIN [Suspect]
     Indication: PAIN
  3. NORCO [Concomitant]
     Dosage: UNK

REACTIONS (2)
  - Off label use [Unknown]
  - Drug ineffective for unapproved indication [Unknown]
